FAERS Safety Report 8298594-1 (Version None)
Quarter: 2012Q2

REPORT INFORMATION
  Report Type: 
  Country: None (occurrence: None)
  Receive Date: 20120419
  Receipt Date: 20120415
  Transmission Date: 20120825
  Serious: Yes (Other)
  Sender: FDA-Public Use
  Company Number: MX-BAYER-2012-036394

PATIENT
  Sex: Female

DRUGS (1)
  1. CLOTRIMAZOLE [Suspect]
     Dosage: UNK
     Route: 067
     Dates: start: 20120401

REACTIONS (1)
  - VAGINAL HAEMORRHAGE [None]
